FAERS Safety Report 23430744 (Version 1)
Quarter: 2024Q1

REPORT INFORMATION
  Report Type: Report from Study
  Country: NL (occurrence: NL)
  Receive Date: 20240123
  Receipt Date: 20240123
  Transmission Date: 20240410
  Serious: Yes (Other)
  Sender: FDA-Public Use
  Company Number: NL-ABBVIE-5595954

PATIENT
  Sex: Male

DRUGS (10)
  1. CARBIDOPA\LEVODOPA [Suspect]
     Active Substance: CARBIDOPA\LEVODOPA
     Indication: Parkinson^s disease
     Dosage: MD: 6.5ML, CD: 4.2ML/H, ED: 2.5ML?REMAINS AT 16 HOURS
     Route: 050
     Dates: start: 20230921, end: 20231219
  2. CARBIDOPA\LEVODOPA [Suspect]
     Active Substance: CARBIDOPA\LEVODOPA
     Dosage: MD: 6.5ML, CD: 4.2ML/H, ED: 2.5ML?REMAINS AT 16 HOURS
     Route: 050
     Dates: start: 20230726, end: 20230921
  3. CARBIDOPA\LEVODOPA [Suspect]
     Active Substance: CARBIDOPA\LEVODOPA
     Dosage: REMAINS AT 16 HOURS?FREQUENCY TEXT: 100ML
     Route: 050
     Dates: start: 20160930
  4. CARBIDOPA\LEVODOPA [Suspect]
     Active Substance: CARBIDOPA\LEVODOPA
     Dosage: MD: 6.5ML, CD: 4.3ML/H, ED: 2.5ML?REMAINS AT 16 HOURS
     Route: 050
     Dates: start: 20230714, end: 20230726
  5. CARBIDOPA\LEVODOPA [Suspect]
     Active Substance: CARBIDOPA\LEVODOPA
     Dosage: MD: 6.5ML, CD: 4.3ML/H, ED: 2.5ML?REMAINS AT 16 HOURS
     Route: 050
     Dates: start: 20231219, end: 20240104
  6. CARBIDOPA\LEVODOPA [Suspect]
     Active Substance: CARBIDOPA\LEVODOPA
     Dosage: MD: 7.0ML, CD: 4.3ML/H, ED: 2.5ML?REMAINS AT 16 HOURS
     Route: 050
     Dates: start: 20240104
  7. DOMPERIDONE [Concomitant]
     Active Substance: DOMPERIDONE
     Indication: Dizziness
  8. BENSERAZIDE HYDROCHLORIDE\LEVODOPA [Concomitant]
     Active Substance: BENSERAZIDE HYDROCHLORIDE\LEVODOPA
     Indication: Parkinson^s disease
  9. LACTULOSUM [Concomitant]
     Indication: Gastrointestinal motility disorder
  10. SYMMETREL [Concomitant]
     Active Substance: AMANTADINE HYDROCHLORIDE
     Indication: Parkinson^s disease

REACTIONS (3)
  - Depressed level of consciousness [Recovering/Resolving]
  - Unevaluable event [Recovering/Resolving]
  - Motor dysfunction [Recovering/Resolving]
